FAERS Safety Report 10515570 (Version 1)
Quarter: 2014Q4

REPORT INFORMATION
  Report Type: Spontaneous
  Country: FI (occurrence: FI)
  Receive Date: 20141014
  Receipt Date: 20141014
  Transmission Date: 20150528
  Serious: No
  Sender: FDA-Public Use
  Company Number: FI-JNJFOC-20141000297

PATIENT
  Sex: Female

DRUGS (3)
  1. DUROGESIC [Suspect]
     Active Substance: FENTANYL
     Indication: CANCER PAIN
     Route: 062
  2. CORTISONE [Concomitant]
     Active Substance: CORTISONE\HYDROCORTISONE
     Route: 065
  3. DUPHALAC [Concomitant]
     Active Substance: LACTULOSE
     Route: 065

REACTIONS (2)
  - Inappropriate schedule of drug administration [Unknown]
  - Product adhesion issue [Unknown]
